FAERS Safety Report 20448605 (Version 3)
Quarter: 2022Q2

REPORT INFORMATION
  Report Type: Spontaneous
  Country: US (occurrence: US)
  Receive Date: 20220209
  Receipt Date: 20220414
  Transmission Date: 20220721
  Serious: No
  Sender: FDA-Public Use
  Company Number: US-VIIV HEALTHCARE LIMITED-US2022016331

PATIENT
  Age: 65 Year
  Sex: Male

DRUGS (2)
  1. RILPIVIRINE [Suspect]
     Active Substance: RILPIVIRINE
     Indication: HIV test
     Dosage: UNK, INJECT 1 VIAL OF 600MG AND 1 VIAL OF 900MG INTRAMUSCULARLY ONCE
     Route: 030
     Dates: start: 20210404
  2. CABOTEGRAVIR [Suspect]
     Active Substance: CABOTEGRAVIR
     Indication: HIV test
     Dosage: UNK, INJECT 1 VIAL OF 600MG AND 1 VIAL OF 900MG INTRAMUSCULARLY ONCE
     Route: 030
     Dates: start: 20210404

REACTIONS (4)
  - Musculoskeletal discomfort [Recovered/Resolved]
  - Injection site rash [Unknown]
  - Injection site pain [Unknown]
  - Product administration error [Unknown]
